FAERS Safety Report 24676092 (Version 2)
Quarter: 2024Q4

REPORT INFORMATION
  Report Type: Report from Study
  Country: US (occurrence: US)
  Receive Date: 20241128
  Receipt Date: 20241217
  Transmission Date: 20250114
  Serious: No
  Sender: MERCK
  Company Number: US-009507513-2411USA000402

PATIENT
  Sex: Female

DRUGS (15)
  1. SOTATERCEPT [Suspect]
     Active Substance: SOTATERCEPT
     Indication: Pulmonary arterial hypertension
     Dosage: 0.8 MILLILITER, Q3W
     Route: 058
     Dates: start: 202406
  2. HYDROXYCHLOROQUINE DIPHOSPHATE [Concomitant]
     Active Substance: HYDROXYCHLOROQUINE DIPHOSPHATE
  3. FUROSEMIDE [Concomitant]
     Active Substance: FUROSEMIDE
  4. FIORICET [Concomitant]
     Active Substance: ACETAMINOPHEN\BUTALBITAL\CAFFEINE
  5. PANTOPRAZOLE SODIUM [Concomitant]
     Active Substance: PANTOPRAZOLE SODIUM
  6. LASIX [Concomitant]
     Active Substance: FUROSEMIDE
  7. OMEPRAZOLE [Concomitant]
     Active Substance: OMEPRAZOLE
  8. FLONASE ALLERGY RELIEF [Concomitant]
     Active Substance: FLUTICASONE PROPIONATE
  9. SILDENAFIL CITRATE [Concomitant]
     Active Substance: SILDENAFIL CITRATE
  10. CLARITIN [Concomitant]
     Active Substance: LORATADINE
  11. XANAX [Concomitant]
     Active Substance: ALPRAZOLAM
  12. AMBRISENTAN [Concomitant]
     Active Substance: AMBRISENTAN
  13. ESTRADIOL [Concomitant]
     Active Substance: ESTRADIOL
     Dosage: UNK UNK, QW
  14. PROGESTERONE [Concomitant]
     Active Substance: PROGESTERONE
  15. TYVASO [Concomitant]
     Active Substance: TREPROSTINIL

REACTIONS (5)
  - Fatigue [Unknown]
  - Pain [Recovered/Resolved]
  - Headache [Unknown]
  - Device issue [Unknown]
  - Product preparation issue [Unknown]

NARRATIVE: CASE EVENT DATE: 20240101
